FAERS Safety Report 4627421-6 (Version None)
Quarter: 2005Q1

REPORT INFORMATION
  Report Type: 
  Country: None (occurrence: None)
  Receive Date: 20050331
  Receipt Date: 20041105
  Transmission Date: 20050727
  Serious: Yes (Hospitalization)
  Sender: FDA-Public Use
  Company Number: 2004-FF-00629FF

PATIENT
  Sex: Female

DRUGS (2)
  1. MICARDIS [Suspect]
     Dates: start: 20040101
  2. CELEBREX [Suspect]

REACTIONS (1)
  - PANCREATITIS [None]
